FAERS Safety Report 10155086 (Version 1)
Quarter: 2014Q2

REPORT INFORMATION
  Report Type: Spontaneous
  Country: US (occurrence: None)
  Receive Date: 20140505
  Receipt Date: 20140505
  Transmission Date: 20141212
  Serious: No
  Sender: FDA-Public Use
  Company Number: None

PATIENT
  Age: 45 Year
  Sex: Female
  Weight: 49.9 kg

DRUGS (1)
  1. SCOPOLAMINE [Suspect]
     Indication: MOTION SICKNESS
     Dosage: 1 PATCH CHANGE EVERY 72 HR APPLIED AS MEDICATED PATCH TO SKIN
     Dates: start: 20140308, end: 20140322

REACTIONS (8)
  - Tachycardia [None]
  - Fatigue [None]
  - Anxiety [None]
  - Decreased appetite [None]
  - Headache [None]
  - Visual impairment [None]
  - Activities of daily living impaired [None]
  - Impaired work ability [None]
